FAERS Safety Report 18692479 (Version 2)
Quarter: 2021Q1

REPORT INFORMATION
  Report Type: Report from Study
  Country: DE (occurrence: DE)
  Receive Date: 20210103
  Receipt Date: 20210203
  Transmission Date: 20210419
  Serious: Yes (Hospitalization)
  Sender: FDA-Public Use
  Company Number: DE-BIOGEN-2020BI00962950

PATIENT
  Age: 50 Year
  Sex: Female

DRUGS (4)
  1. TECFIDERA [Suspect]
     Active Substance: DIMETHYL FUMARATE
     Indication: MULTIPLE SCLEROSIS
     Dosage: MAINTENANCE DOSE
     Route: 048
     Dates: start: 20200730
  2. LEVETIRACETAM. [Concomitant]
     Active Substance: LEVETIRACETAM
     Indication: EPILEPSY
     Route: 065
     Dates: start: 2010
  3. QUETIAPIN [Concomitant]
     Active Substance: QUETIAPINE
     Indication: DEPRESSION
     Dosage: QPM
     Route: 065
     Dates: start: 2010
  4. QUETIAPIN [Concomitant]
     Active Substance: QUETIAPINE
     Dosage: QPM
     Route: 065
     Dates: start: 2010

REACTIONS (3)
  - Disturbance in attention [Not Recovered/Not Resolved]
  - Thinking abnormal [Not Recovered/Not Resolved]
  - Feeling of despair [Not Recovered/Not Resolved]

NARRATIVE: CASE EVENT DATE: 202010
